FAERS Safety Report 12713670 (Version 1)
Quarter: 2016Q3

REPORT INFORMATION
  Report Type: Spontaneous
  Country: US (occurrence: US)
  Receive Date: 20160904
  Receipt Date: 20160904
  Transmission Date: 20161109
  Serious: No
  Sender: FDA-Public Use
  Company Number: US-ASTRAZENECA-2016SE92378

PATIENT
  Sex: Female

DRUGS (5)
  1. ANTI ACIDS [Concomitant]
  2. NEXIUM [Suspect]
     Active Substance: ESOMEPRAZOLE MAGNESIUM
     Dosage: UNKNOWN
     Route: 065
  3. NITRO [Concomitant]
     Active Substance: NITROGLYCERIN
     Indication: OESOPHAGEAL SPASM
  4. ESSENTIAL OILS. [Concomitant]
     Active Substance: ESSENTIAL OILS
     Indication: PAIN
     Dosage: ONCE A DAY
  5. PILLS [Concomitant]
     Active Substance: UNSPECIFIED INGREDIENT

REACTIONS (2)
  - Pain [Unknown]
  - Oesophageal spasm [Unknown]
